APPROVED DRUG PRODUCT: DAPSONE
Active Ingredient: DAPSONE
Strength: 25MG
Dosage Form/Route: TABLET;ORAL
Application: A209430 | Product #001
Applicant: TARO PHARMACEUTICAL INDUSTRIES LTD
Approved: Mar 1, 2019 | RLD: No | RS: No | Type: DISCN